FAERS Safety Report 6968649-X (Version None)
Quarter: 2010Q3

REPORT INFORMATION
  Report Type: 
  Country: None (occurrence: None)
  Receive Date: 20100907
  Receipt Date: 20100831
  Transmission Date: 20110219
  Serious: Yes (Other)
  Sender: FDA-Public Use
  Company Number: A0878669A

PATIENT
  Age: 42 Year
  Sex: Female

DRUGS (2)
  1. BEXXAR [Suspect]
     Indication: NON-HODGKIN'S LYMPHOMA
     Route: 042
     Dates: start: 20100201, end: 20100601
  2. NO CONCURRENT MEDICATION [Concomitant]

REACTIONS (5)
  - AMENORRHOEA [None]
  - ENCEPHALITIS [None]
  - ENCEPHALITIS HERPES [None]
  - MENINGITIS [None]
  - MENINGITIS HERPES [None]
